FAERS Safety Report 6369856-X (Version None)
Quarter: 2009Q3

REPORT INFORMATION
  Report Type: 
  Country: None (occurrence: None)
  Receive Date: 20090923
  Receipt Date: 20070306
  Transmission Date: 20100115
  Serious: Yes (Other)
  Sender: FDA-Public Use
  Company Number: US-ASTRAZENECA-2006UW10864

PATIENT
  Age: 15945 Day
  Sex: Female
  Weight: 123.8 kg

DRUGS (19)
  1. SEROQUEL [Suspect]
     Indication: INSOMNIA
     Dosage: 50-200 MG
     Route: 048
     Dates: start: 20030415, end: 20031111
  2. ACTOS [Concomitant]
     Route: 048
  3. HUMALOG [Concomitant]
     Dosage: 75/25 20 UNITS IN THE MORNING AND 50 UNITS IN THE EVENING
     Route: 065
  4. GLUCOTROL [Concomitant]
     Route: 048
  5. METOPROLOL TARTRATE [Concomitant]
     Route: 065
  6. EPINEPHRINE [Concomitant]
     Route: 065
  7. COZAAR [Concomitant]
     Dosage: DOSE INCREASED FROM 25 MG TO 100 MG PER DAY
     Route: 065
  8. CHOLESTYRAMINE [Concomitant]
     Dosage: 3 TABLETS DAILY
     Route: 065
  9. ASPIRIN [Concomitant]
     Route: 065
  10. ESKALITH [Concomitant]
     Route: 065
  11. ALBUTEROL [Concomitant]
     Route: 065
  12. CLIMARA [Concomitant]
     Route: 065
  13. TRILEPTAL [Concomitant]
     Route: 065
  14. ABILIFY [Concomitant]
     Dosage: 2.5 TO 10 MG PER DAY
     Route: 065
  15. GLYBURIDE [Concomitant]
     Route: 065
  16. LIPITOR [Concomitant]
     Route: 065
  17. NITROGLYCERIN [Concomitant]
     Indication: ANGINA PECTORIS
     Route: 065
  18. VITAMIN B COMPLEX CAP [Concomitant]
     Route: 065
  19. METFORMIN HYDROCHLORIDE [Concomitant]
     Route: 065

REACTIONS (13)
  - ADVERSE DRUG REACTION [None]
  - COSTOCHONDRITIS [None]
  - DYSAESTHESIA [None]
  - HAEMOPTYSIS [None]
  - HYPERGLYCAEMIA [None]
  - HYPOGLYCAEMIA [None]
  - MUSCLE STRAIN [None]
  - MYALGIA [None]
  - OSTEONECROSIS [None]
  - SUICIDAL IDEATION [None]
  - UPPER RESPIRATORY TRACT INFECTION [None]
  - VARICOSE VEIN [None]
  - VULVOVAGINAL MYCOTIC INFECTION [None]
